FAERS Safety Report 7108537-1 (Version None)
Quarter: 2010Q4

REPORT INFORMATION
  Report Type: 
  Country: None (occurrence: None)
  Receive Date: 20101117
  Receipt Date: 20101006
  Transmission Date: 20110411
  Serious: No
  Sender: FDA-Public Use
  Company Number: A0877118A

PATIENT
  Age: 69 Year
  Sex: Male
  Weight: 67.7 kg

DRUGS (10)
  1. VOTRIENT [Suspect]
     Indication: RENAL CANCER METASTATIC
     Dosage: 800MG PER DAY
     Route: 048
     Dates: start: 20100309
  2. RADIATION THERAPY [Suspect]
     Dates: end: 20100727
  3. CENTRUM SILVER [Concomitant]
  4. VITAMIN D [Concomitant]
  5. FERROUS SULFATE [Concomitant]
  6. MEPRON [Concomitant]
  7. VALTREX [Concomitant]
  8. WARFARIN [Concomitant]
  9. DOCUSATE SODIUM [Concomitant]
  10. LEVOTHYROXINE [Concomitant]

REACTIONS (9)
  - ALOPECIA [None]
  - BLOOD POTASSIUM INCREASED [None]
  - DECREASED APPETITE [None]
  - DIARRHOEA [None]
  - FATIGUE [None]
  - HAEMOGLOBIN DECREASED [None]
  - HAIR COLOUR CHANGES [None]
  - HYPOAESTHESIA [None]
  - WEIGHT DECREASED [None]
